FAERS Safety Report 5100925-8 (Version None)
Quarter: 2006Q3

REPORT INFORMATION
  Report Type: 
  Country: None (occurrence: None)
  Receive Date: 20060731
  Receipt Date: 20060614
  Transmission Date: 20061208
  Serious: No
  Sender: FDA-Public Use
  Company Number: 2006PV015640

PATIENT
  Age: 53 Year
  Sex: Male
  Weight: 136.0791 kg

DRUGS (12)
  1. BYETTA [Suspect]
     Indication: DIABETES MELLITUS NON-INSULIN-DEPENDENT
     Dosage: 5 MCG;BID;SC
     Route: 058
     Dates: start: 20060401, end: 20060415
  2. BYETTA [Suspect]
     Indication: DIABETES MELLITUS NON-INSULIN-DEPENDENT
     Dosage: 5 MCG;BID;SC
     Route: 058
     Dates: start: 20060601
  3. AMARYL [Concomitant]
  4. ACTOS PLUS WITH METFORMIN [Concomitant]
  5. TRICOR [Concomitant]
  6. ZOCOR [Concomitant]
  7. PREVACID [Concomitant]
  8. SPIRONOLACTONE [Concomitant]
  9. FUROSEMIDE [Concomitant]
  10. ALTACE [Concomitant]
  11. SOTALOL HYDROCHLORIDE [Concomitant]
  12. MOTRIN [Concomitant]

REACTIONS (2)
  - BLOOD GLUCOSE INCREASED [None]
  - MEDICATION ERROR [None]
